FAERS Safety Report 5960037-8 (Version None)
Quarter: 2008Q4

REPORT INFORMATION
  Report Type: 
  Country: None (occurrence: None)
  Receive Date: 20081120
  Receipt Date: 20081112
  Transmission Date: 20090506
  Serious: Yes (Disabling)
  Sender: FDA-Public Use
  Company Number: DE-JNJFOC-20081003023

PATIENT
  Sex: Female
  Weight: 79 kg

DRUGS (10)
  1. TRAMADOL HCL [Suspect]
     Route: 065
  2. TRAMADOL HCL [Suspect]
     Indication: RADICULAR SYNDROME
     Route: 065
  3. TRAMADOL HCL [Suspect]
     Indication: SPINAL OSTEOARTHRITIS
     Route: 065
  4. QUENSYL [Concomitant]
  5. LEVOTHYROXINE SODIUM [Concomitant]
     Dosage: 150 1/4 G, 1X1
  6. IBU-RETARD [Concomitant]
     Dosage: 800 RET. 1X1
  7. AMITRIPTYLINE HCL [Concomitant]
     Dosage: 1X1
  8. RANITIDINE HCL [Concomitant]
     Dosage: 1X1
  9. MYDOCALM [Concomitant]
     Dosage: 2X1
  10. METAMIZOLE [Concomitant]
     Dosage: 2X1

REACTIONS (3)
  - DYSTONIA [None]
  - MUSCLE SPASMS [None]
  - TREMOR [None]
